FAERS Safety Report 7048522-1 (Version None)
Quarter: 2010Q4

REPORT INFORMATION
  Report Type: 
  Country: None (occurrence: None)
  Receive Date: 20101008
  Receipt Date: 20100827
  Transmission Date: 20110411
  Serious: Yes (Other)
  Sender: FDA-Public Use
  Company Number: 715047

PATIENT
  Age: 55 Year
  Sex: Female

DRUGS (4)
  1. THIOPENTAL SODIUM [Suspect]
     Indication: ANAESTHESIA
     Dosage: 375 MG MILLIGRAM(S),
  2. (MIDAZOLAM) [Suspect]
     Indication: ANAESTHESIA
     Dosage: 1.5 MG MILLIGRAM(S),
  3. FENTANYL CITRATE [Suspect]
     Indication: ANAESTHESIA
     Dosage: .2 MG MILLIGRAM(S),
  4. (CURACIT) [Suspect]
     Indication: ANAESTHESIA
     Dosage: 100 MG MILLIGRAM(S),

REACTIONS (3)
  - HYPERSENSITIVITY [None]
  - HYPOTENSION [None]
  - TACHYCARDIA [None]
